FAERS Safety Report 11327070 (Version 3)
Quarter: 2015Q4

REPORT INFORMATION
  Report Type: Spontaneous
  Country: FR (occurrence: FR)
  Receive Date: 20150731
  Receipt Date: 20151012
  Transmission Date: 20160304
  Serious: Yes (Hospitalization)
  Sender: FDA-Public Use
  Company Number: PHHY2015FR088003

PATIENT
  Age: 65 Year
  Sex: Female

DRUGS (24)
  1. DROPERIDOL. [Suspect]
     Active Substance: DROPERIDOL
     Indication: PRODUCT USED FOR UNKNOWN INDICATION
     Dosage: 125 MG, UNK
     Route: 065
     Dates: start: 20150623, end: 20150623
  2. OFLOXACINE ARROW [Suspect]
     Active Substance: OFLOXACIN
     Indication: URINARY TRACT INFECTION
     Route: 065
     Dates: start: 20150623, end: 20150623
  3. ACTONEL [Concomitant]
     Active Substance: RISEDRONATE SODIUM
     Indication: PRODUCT USED FOR UNKNOWN INDICATION
     Route: 065
  4. EPHEDRINE. [Concomitant]
     Active Substance: EPHEDRINE
     Indication: PRODUCT USED FOR UNKNOWN INDICATION
     Dosage: 6 MG, UNK
     Route: 065
  5. SUFENTANIL [Suspect]
     Active Substance: SUFENTANIL
     Indication: PRODUCT USED FOR UNKNOWN INDICATION
     Route: 065
     Dates: start: 20150623, end: 20150623
  6. PARACETAMOL [Suspect]
     Active Substance: ACETAMINOPHEN
     Indication: PRODUCT USED FOR UNKNOWN INDICATION
     Dosage: 180 MG, UNK
     Route: 065
     Dates: start: 20150623, end: 20150623
  7. SUFENTA [Concomitant]
     Active Substance: SUFENTANIL CITRATE
     Indication: PRODUCT USED FOR UNKNOWN INDICATION
     Route: 065
  8. ATROPINE. [Concomitant]
     Active Substance: ATROPINE
     Indication: PRODUCT USED FOR UNKNOWN INDICATION
     Dosage: 1 MG, UNK
     Route: 042
  9. PHYSIOLOGICAL SALINE SOLUTION [Concomitant]
     Active Substance: SODIUM CHLORIDE
     Indication: PRODUCT USED FOR UNKNOWN INDICATION
     Dosage: 500 ML, TID
     Route: 065
  10. AMOXICILLIN CLAVULANIC ACID SANDOZ [Suspect]
     Active Substance: AMOXICILLIN\CLAVULANIC ACID
     Indication: INFECTION PROPHYLAXIS
     Route: 042
     Dates: start: 20150623, end: 20150623
  11. APROVEL [Concomitant]
     Active Substance: IRBESARTAN
     Indication: PRODUCT USED FOR UNKNOWN INDICATION
     Route: 065
  12. DEXAMETHASONE. [Concomitant]
     Active Substance: DEXAMETHASONE
     Indication: PRODUCT USED FOR UNKNOWN INDICATION
     Dosage: 8 MG, UNK
     Route: 065
  13. SODIUM CHLORIDE INJECTION + ELECTROLYTES [Concomitant]
     Indication: PRODUCT USED FOR UNKNOWN INDICATION
     Dosage: 500 ML, BID
     Route: 065
  14. DEXAMETHASONE. [Suspect]
     Active Substance: DEXAMETHASONE
     Indication: PRODUCT USED FOR UNKNOWN INDICATION
     Dosage: 8 MG, UNK
     Route: 065
     Dates: start: 20150623, end: 20150623
  15. KETOPROFEN. [Suspect]
     Active Substance: KETOPROFEN
     Indication: PROCEDURAL PAIN
     Dosage: 50 MG, UNK
     Route: 030
     Dates: start: 20150623, end: 20150623
  16. TRACRIUM [Concomitant]
     Active Substance: ATRACURIUM BESYLATE
     Indication: PRODUCT USED FOR UNKNOWN INDICATION
     Route: 065
  17. ATRACURIUM HOSPIRA [Suspect]
     Active Substance: ATRACURIUM
     Indication: PRODUCT USED FOR UNKNOWN INDICATION
     Route: 065
     Dates: start: 20150623, end: 20150623
  18. PROPOFOL. [Concomitant]
     Active Substance: PROPOFOL
     Indication: PRODUCT USED FOR UNKNOWN INDICATION
     Dosage: 180 MG, UNK
     Route: 065
  19. HETASTARCH. [Concomitant]
     Active Substance: HETASTARCH
     Indication: PRODUCT USED FOR UNKNOWN INDICATION
     Dosage: 500 ML, ONCE/SINGLE
     Route: 065
  20. KETALAR [Concomitant]
     Active Substance: KETAMINE HYDROCHLORIDE
     Indication: PRODUCT USED FOR UNKNOWN INDICATION
     Dosage: 15 MG, UNK
     Route: 065
  21. EPHEDRINE. [Suspect]
     Active Substance: EPHEDRINE
     Indication: PRODUCT USED FOR UNKNOWN INDICATION
     Dosage: 6 MG, UNK
     Route: 065
     Dates: start: 20150623, end: 20150623
  22. KETAMINE ^PANPHARMA^ [Suspect]
     Active Substance: KETAMINE
     Indication: PRODUCT USED FOR UNKNOWN INDICATION
     Dosage: 15 MG, UNK
     Route: 065
     Dates: start: 20150623, end: 20150623
  23. PERFALGAN [Concomitant]
     Active Substance: ACETAMINOPHEN
     Indication: PRODUCT USED FOR UNKNOWN INDICATION
     Route: 065
  24. LEXOMIL [Concomitant]
     Active Substance: BROMAZEPAM
     Indication: PRODUCT USED FOR UNKNOWN INDICATION
     Route: 065

REACTIONS (1)
  - Acute kidney injury [Recovering/Resolving]

NARRATIVE: CASE EVENT DATE: 20150624
